FAERS Safety Report 5914068-4 (Version None)
Quarter: 2008Q4

REPORT INFORMATION
  Report Type: 
  Country: None (occurrence: None)
  Receive Date: 20081009
  Receipt Date: 20080405
  Transmission Date: 20090506
  Serious: No
  Sender: FDA-Public Use
  Company Number: US-BRISTOL-MYERS SQUIBB COMPANY-14143515

PATIENT

DRUGS (1)
  1. XENON-133 GAS [Suspect]
     Dosage: XENON XE 133 GAS INJECTION 20MCI VIAL 1 US 11994-128-21

REACTIONS (1)
  - DECREASED ACTIVITY [None]
